FAERS Safety Report 17598168 (Version 2)
Quarter: 2020Q2

REPORT INFORMATION
  Report Type: Spontaneous
  Country: CO (occurrence: CO)
  Receive Date: 20200330
  Receipt Date: 20200409
  Transmission Date: 20200713
  Serious: Yes (Life-Threatening, Hospitalization)
  Sender: FDA-Public Use
  Company Number: NVSC2020CO086483

PATIENT
  Age: 39 Year
  Sex: Female

DRUGS (1)
  1. MYCOPHENOLATE MOFETIL. [Suspect]
     Active Substance: MYCOPHENOLATE MOFETIL
     Indication: PEMPHIGUS
     Dosage: 2 G, QD
     Route: 065

REACTIONS (4)
  - Sepsis [Recovered/Resolved]
  - Drug resistance [Unknown]
  - Pemphigus [Recovered/Resolved]
  - Product use in unapproved indication [Unknown]
